FAERS Safety Report 24697545 (Version 1)
Quarter: 2024Q4

REPORT INFORMATION
  Report Type: Spontaneous
  Country: US (occurrence: US)
  Receive Date: 20241204
  Receipt Date: 20241204
  Transmission Date: 20250115
  Serious: No
  Sender: CALLIDITAS THERAPEUTICS AB
  Company Number: US-Calliditas-2024CAL02700

PATIENT
  Age: 43 Year
  Sex: Female

DRUGS (10)
  1. TARPEYO [Suspect]
     Active Substance: BUDESONIDE
     Indication: IgA nephropathy
     Route: 048
     Dates: start: 20241016
  2. ALBUTEROL [Concomitant]
     Active Substance: ALBUTEROL
  3. AZATHIOPRINE [Concomitant]
     Active Substance: AZATHIOPRINE
  4. LASIX [Concomitant]
     Active Substance: FUROSEMIDE
  5. LEVOTHYROXINE [Concomitant]
     Active Substance: LEVOTHYROXINE
  6. LOSARTAN [Concomitant]
     Active Substance: LOSARTAN
  7. PREDNISONE [Concomitant]
     Active Substance: PREDNISONE
  8. SODIUM BICARBONATE [Concomitant]
     Active Substance: SODIUM BICARBONATE
  9. TRIAMCINOLONE [Concomitant]
     Active Substance: TRIAMCINOLONE
  10. VITAMIN D2 [Concomitant]
     Active Substance: ERGOCALCIFEROL

REACTIONS (1)
  - Dialysis [Not Recovered/Not Resolved]
